FAERS Safety Report 16188017 (Version 1)
Quarter: 2019Q2

REPORT INFORMATION
  Report Type: Spontaneous
  Country: US (occurrence: US)
  Receive Date: 20190412
  Receipt Date: 20190412
  Transmission Date: 20190711
  Serious: No
  Sender: FDA-Public Use
  Company Number: US-AMGEN INC.-USASP2019056734

PATIENT
  Age: 54 Year
  Sex: Female

DRUGS (3)
  1. TRAZODONE [Suspect]
     Active Substance: TRAZODONE HYDROCHLORIDE
     Indication: PRODUCT USED FOR UNKNOWN INDICATION
     Route: 065
  2. AIMOVIG [Suspect]
     Active Substance: ERENUMAB-AOOE
     Indication: MIGRAINE
     Route: 065
  3. TOPIRAMATE. [Concomitant]
     Active Substance: TOPIRAMATE
     Dosage: 100MG IN THE MORNING AND 100MG IN THE EVENING

REACTIONS (5)
  - Pollakiuria [Unknown]
  - Drug ineffective [Unknown]
  - Abdominal pain upper [Unknown]
  - Weight decreased [Recovering/Resolving]
  - Dry mouth [Unknown]
